APPROVED DRUG PRODUCT: NYSTEX
Active Ingredient: NYSTATIN
Strength: 100,000 UNITS/ML
Dosage Form/Route: SUSPENSION;ORAL
Application: A062519 | Product #001
Applicant: SAVAGE LABORATORIES INC DIV ALTANA INC
Approved: Jul 6, 1984 | RLD: No | RS: No | Type: DISCN